FAERS Safety Report 25578545 (Version 1)
Quarter: 2025Q3

REPORT INFORMATION
  Report Type: Spontaneous
  Country: GB (occurrence: GB)
  Receive Date: 20250718
  Receipt Date: 20250718
  Transmission Date: 20251021
  Serious: Yes (Hospitalization, Other)
  Sender: FRESENIUS KABI
  Company Number: GB-FreseniusKabi-FK202509933

PATIENT
  Age: 68 Year
  Sex: Female

DRUGS (1)
  1. ADALIMUMAB [Suspect]
     Active Substance: ADALIMUMAB
     Indication: Psoriasis
     Dosage: FREQUENCY: FORTNIGHTLY?SHE WAS INITIATED ON FORTNIGHTLY ADALIMUMAB FOUR YEARS PRIOR TO PRESENTATION

REACTIONS (1)
  - Autoimmune haemolytic anaemia [Recovering/Resolving]
